FAERS Safety Report 14551278 (Version 1)
Quarter: 2018Q1

REPORT INFORMATION
  Report Type: Spontaneous
  Country: US (occurrence: US)
  Receive Date: 20180220
  Receipt Date: 20180220
  Transmission Date: 20180509
  Serious: No
  Sender: FDA-Public Use
  Company Number: US-TEVA-727367ACC

PATIENT
  Sex: Female
  Weight: 52.66 kg

DRUGS (1)
  1. TAMOXIFEN CITRATE. [Suspect]
     Active Substance: TAMOXIFEN CITRATE
     Indication: BREAST CANCER

REACTIONS (3)
  - Restless legs syndrome [Recovered/Resolved]
  - Foreign body in respiratory tract [Unknown]
  - Muscle spasms [Recovered/Resolved]
